FAERS Safety Report 14621404 (Version 1)
Quarter: 2018Q1

REPORT INFORMATION
  Report Type: Report from Study
  Country: RO (occurrence: RO)
  Receive Date: 20180310
  Receipt Date: 20180310
  Transmission Date: 20180509
  Serious: Yes (Other)
  Sender: FDA-Public Use
  Company Number: RO-AMGEN-ROUSL2018031537

PATIENT
  Age: 66 Year
  Sex: Female

DRUGS (1)
  1. PROLIA [Suspect]
     Active Substance: DENOSUMAB
     Indication: OSTEOPOROSIS
     Dosage: UNK
     Route: 065
     Dates: start: 201802

REACTIONS (6)
  - Dyspepsia [Unknown]
  - Bone pain [Unknown]
  - Nausea [Recovered/Resolved]
  - Systemic scleroderma [Unknown]
  - Pruritus [Unknown]
  - Ear pain [Unknown]

NARRATIVE: CASE EVENT DATE: 201802
